FAERS Safety Report 11686689 (Version 1)
Quarter: 2015Q4

REPORT INFORMATION
  Report Type: Spontaneous
  Country: RU (occurrence: RU)
  Receive Date: 20151030
  Receipt Date: 20151030
  Transmission Date: 20160304
  Serious: Yes (Death, Hospitalization, Other)
  Sender: FDA-Public Use
  Company Number: RU-SA-2015SA170541

PATIENT
  Sex: Female

DRUGS (2)
  1. GLUCOPHAGE [Concomitant]
     Active Substance: METFORMIN HYDROCHLORIDE
     Indication: TYPE 2 DIABETES MELLITUS
     Dosage: DOSE: 1500 MG IN THE MORNING, 1000 MG IN THE EVENING
     Route: 048
  2. LANTUS [Suspect]
     Active Substance: INSULIN GLARGINE
     Indication: TYPE 2 DIABETES MELLITUS
     Route: 058

REACTIONS (7)
  - Condition aggravated [Not Recovered/Not Resolved]
  - Sopor [Not Recovered/Not Resolved]
  - Ulcer [Unknown]
  - Brain oedema [Fatal]
  - Gastric haemorrhage [Unknown]
  - Hyperglycaemia [Not Recovered/Not Resolved]
  - Cerebrovascular accident [Unknown]
